FAERS Safety Report 24709961 (Version 1)
Quarter: 2024Q4

REPORT INFORMATION
  Report Type: Spontaneous
  Country: US (occurrence: US)
  Receive Date: 20241209
  Receipt Date: 20241209
  Transmission Date: 20250115
  Serious: No
  Sender: GREER
  Company Number: US-STALCOR-2024-AER-02528

PATIENT
  Age: 10 Year
  Sex: Male
  Weight: 24.95 kg

DRUGS (4)
  1. PALFORZIA [Suspect]
     Active Substance: PEANUT
     Indication: Food allergy
     Dosage: REACTIVE DOSE, LAST DOSE PRIOR TO EVENT ONSET
     Route: 048
     Dates: start: 20241107
  2. PALFORZIA [Suspect]
     Active Substance: PEANUT
     Dosage: START DATE OF DOSE LVL 4 (20MG)
     Route: 048
     Dates: start: 20241106
  3. PALFORZIA [Suspect]
     Active Substance: PEANUT
     Dosage: DOSE REDUCED TO 12 MG IN RESPONSE TO REPORTED AE
     Route: 048
  4. PALFORZIA [Suspect]
     Active Substance: PEANUT
     Dosage: IDE START
     Route: 048
     Dates: start: 20240914

REACTIONS (1)
  - Vomiting [Unknown]

NARRATIVE: CASE EVENT DATE: 20241107
